FAERS Safety Report 6313514-4 (Version None)
Quarter: 2009Q3

REPORT INFORMATION
  Report Type: 
  Country: None (occurrence: None)
  Receive Date: 20090818
  Receipt Date: 20090806
  Transmission Date: 20100115
  Serious: Yes (Hospitalization)
  Sender: FDA-Public Use
  Company Number: US-ELI_LILLY_AND_COMPANY-US200908002443

PATIENT
  Sex: Female

DRUGS (15)
  1. CYMBALTA [Suspect]
     Indication: FIBROMYALGIA
     Dosage: 120 MG, DAILY (1/D)
     Dates: start: 20090201
  2. CYMBALTA [Suspect]
     Dosage: 1 D/F, UNK
     Dates: start: 20090101
  3. TOLTERODINE TARTRATE [Concomitant]
     Dosage: 4 MG, DAILY (1/D)
  4. TRAZODONE HCL [Concomitant]
     Dosage: 50 MG, DAILY (1/D)
  5. PREGABALIN [Concomitant]
     Dosage: 75 MG, 2/D
  6. PROPRANOLOL [Concomitant]
     Dosage: 25 MG, DAILY (1/D)
  7. PREDNISONE [Concomitant]
     Dosage: 7.5 MG, DAILY (1/D)
  8. LEVOTHYROXINE [Concomitant]
     Dosage: 75 UG, DAILY (1/D)
  9. INSULIN [Concomitant]
  10. FENTANYL [Concomitant]
     Dosage: 50 UG, UNK
  11. ARIPIPRAZOLE [Concomitant]
     Dosage: 20 MG, DAILY (1/D)
  12. LAMICTAL [Concomitant]
     Dosage: 25 MG, 2/D
  13. HEPARIN [Concomitant]
  14. ESTRADIOL [Concomitant]
     Dosage: 1 D/F, DAILY (1/D)
  15. CALCIUM [Concomitant]

REACTIONS (8)
  - ALANINE AMINOTRANSFERASE INCREASED [None]
  - ASPARTATE AMINOTRANSFERASE INCREASED [None]
  - HEADACHE [None]
  - INSOMNIA [None]
  - LETHARGY [None]
  - NAUSEA [None]
  - PYREXIA [None]
  - WHITE BLOOD CELL COUNT DECREASED [None]
